FAERS Safety Report 8869003 (Version 1)
Quarter: 2012Q4

REPORT INFORMATION
  Report Type: 
  Country: US (occurrence: US)
  Receive Date: 20121027
  Receipt Date: 20121027
  Transmission Date: 20130627
  Serious: No
  Sender: FDA-Public Use
  Company Number: US-009507513-1210USA008631

PATIENT
  Sex: Female

DRUGS (3)
  1. IMPLANON [Suspect]
     Indication: MIGRAINE PROPHYLAXIS
     Dosage: UNK
     Dates: start: 201203
  2. IMPLANON [Suspect]
     Indication: ENDOMETRIOSIS
  3. IMPLANON [Suspect]
     Indication: OVARIAN CYST

REACTIONS (6)
  - Endometriosis [Not Recovered/Not Resolved]
  - Migraine [Not Recovered/Not Resolved]
  - Ovarian cyst [Not Recovered/Not Resolved]
  - Weight increased [Not Recovered/Not Resolved]
  - Back pain [Not Recovered/Not Resolved]
  - Adverse event [Unknown]
